FAERS Safety Report 20886394 (Version 3)
Quarter: 2022Q4

REPORT INFORMATION
  Report Type: Report from Study
  Country: US (occurrence: US)
  Receive Date: 20220527
  Receipt Date: 20221011
  Transmission Date: 20230113
  Serious: No
  Sender: FDA-Public Use
  Company Number: US-NOVARTISTESTPH-NVSC2022US122763

PATIENT
  Sex: Female

DRUGS (1)
  1. TASIGNA [Suspect]
     Active Substance: NILOTINIB
     Indication: Product used for unknown indication
     Dosage: UNK
     Route: 065

REACTIONS (8)
  - Fall [Unknown]
  - Limb injury [Unknown]
  - Vascular rupture [Unknown]
  - Foot fracture [Unknown]
  - Pain [Unknown]
  - Diarrhoea [Unknown]
  - Fatigue [Unknown]
  - Contusion [Unknown]
